FAERS Safety Report 7842028-5 (Version None)
Quarter: 2011Q4

REPORT INFORMATION
  Report Type: 
  Country: None (occurrence: None)
  Receive Date: 20111025
  Receipt Date: 20111019
  Transmission Date: 20120403
  Serious: Yes (Hospitalization)
  Sender: FDA-Public Use
  Company Number: PHHY2009JP22134

PATIENT
  Weight: 37 kg

DRUGS (10)
  1. LANSOPRAZOLE [Concomitant]
     Dosage: 30 MG, UNK
     Route: 048
     Dates: start: 20090525
  2. RED CELLS MAP [Concomitant]
     Dosage: 2 UNITS EVERY 1 TO 2 WEEKS
     Dates: start: 20090323
  3. EXJADE [Suspect]
     Indication: MYELOFIBROSIS
     Dosage: 500 MG, DAILY
     Route: 048
     Dates: start: 20090512, end: 20090523
  4. EXJADE [Suspect]
     Indication: IRON OVERLOAD
     Dosage: 500 MG, DAILY
     Route: 048
     Dates: start: 20090609, end: 20090801
  5. EXJADE [Suspect]
     Dosage: 100 MG, DAILY
     Route: 048
     Dates: start: 20091013, end: 20091120
  6. LASIX [Concomitant]
     Indication: CARDIAC FAILURE
     Dosage: 20 MG,
     Route: 048
     Dates: start: 20090326
  7. ISOSORBIDE DINITRATE [Concomitant]
     Indication: CARDIAC FAILURE
     Dosage: 40 MG, UNK
     Route: 062
     Dates: start: 20090326
  8. EXJADE [Suspect]
     Dosage: 500 MG, DAILY
     Route: 048
     Dates: start: 20090908, end: 20090927
  9. ALDACTONE [Concomitant]
     Indication: CARDIAC FAILURE
     Dosage: 25 MG, UNK
     Route: 048
     Dates: start: 20090326
  10. PRIMOBOLAN-DEPOT INJ [Concomitant]
     Indication: MYELOFIBROSIS
     Dosage: 15 MG, UNK
     Route: 048
     Dates: start: 20090609

REACTIONS (14)
  - DECREASED APPETITE [None]
  - DIARRHOEA [None]
  - NEOPLASM PROGRESSION [None]
  - LEUKAEMIA [None]
  - VOMITING [None]
  - NEUTROPHIL COUNT DECREASED [None]
  - PROTEINURIA [None]
  - NEOPLASM MALIGNANT [None]
  - WHITE BLOOD CELL COUNT INCREASED [None]
  - NAUSEA [None]
  - MONOCYTE COUNT INCREASED [None]
  - RENAL IMPAIRMENT [None]
  - GASTROINTESTINAL INFECTION [None]
  - GASTROINTESTINAL DISORDER [None]
